FAERS Safety Report 7765659-X (Version None)
Quarter: 2011Q3

REPORT INFORMATION
  Report Type: 
  Country: None (occurrence: None)
  Receive Date: 20110921
  Receipt Date: 20110916
  Transmission Date: 20111222
  Serious: Yes (Other)
  Sender: FDA-Public Use
  Company Number: US-PFIZER INC-2011220476

PATIENT
  Sex: Female
  Weight: 85.7 kg

DRUGS (10)
  1. CELEBREX [Suspect]
     Indication: ARTHRITIS
     Dosage: 200 MG, 2X/DAY
  2. PERCOCET [Concomitant]
     Dosage: UNKNOWN DOSE THREE TIMES A DAY,
  3. OXYCONTIN [Concomitant]
     Dosage: 60 MG, 2X/DAY
  4. CELEBREX [Suspect]
     Dosage: UNK
     Dates: start: 20110101
  5. RAPAMUNE [Concomitant]
     Dosage: 220 MG, DAILY
  6. ERGOCALCIFEROL [Concomitant]
     Dosage: 1.25 UG, WEEKLY
  7. NEURONTIN [Suspect]
     Indication: NEUROPATHY PERIPHERAL
     Dosage: 600MG (TWO AND A HALF PILL) THREE TIMES A DAY
  8. PLAQUENIL [Concomitant]
     Dosage: 200 MG, 2X/DAY
  9. LISINOPRIL AND HYDROCHLOROTHIAZIDE [Concomitant]
     Dosage: 20/25 MG,DAILY
  10. OMEPRAZOLE [Concomitant]
     Dosage: 40 MG, DAILY

REACTIONS (1)
  - HYPOTHYROIDISM [None]
